FAERS Safety Report 8242660-3 (Version None)
Quarter: 2012Q1

REPORT INFORMATION
  Report Type: 
  Country: None (occurrence: None)
  Receive Date: 20120329
  Receipt Date: 20120327
  Transmission Date: 20120608
  Serious: Yes (Hospitalization)
  Sender: FDA-Public Use
  Company Number: PHHY2012NL026648

PATIENT
  Sex: Male

DRUGS (3)
  1. ZOMETA [Suspect]
     Dosage: 4 MG/100ML, 1X PER 28 DAYS
     Dates: start: 20120223
  2. ZOMETA [Suspect]
     Indication: PROSTATE CANCER METASTATIC
     Dosage: 4 MG/100ML, 1X PER 28 DAYS
  3. ZOMETA [Suspect]
     Dosage: 4 MG/100ML, 1X PER 28 DAYS
     Dates: start: 20100325

REACTIONS (1)
  - MALAISE [None]
